FAERS Safety Report 5031220-3 (Version None)
Quarter: 2006Q2

REPORT INFORMATION
  Report Type: 
  Country: None (occurrence: None)
  Receive Date: 20060621
  Receipt Date: 20060405
  Transmission Date: 20061013
  Serious: No
  Sender: FDA-Public Use
  Company Number: US-GLAXOSMITHKLINE-A0600549A

PATIENT
  Sex: Female

DRUGS (2)
  1. AVANDARYL [Suspect]
     Dosage: 1TAB PER DAY
     Route: 048
     Dates: start: 20060301
  2. AVANDIA [Suspect]
     Dosage: 4MG PER DAY
     Route: 048

REACTIONS (1)
  - RASH [None]
